FAERS Safety Report 8129125-4 (Version None)
Quarter: 2012Q1

REPORT INFORMATION
  Report Type: 
  Country: None (occurrence: None)
  Receive Date: 20120210
  Receipt Date: 20111110
  Transmission Date: 20120608
  Serious: No
  Sender: FDA-Public Use
  Company Number: US-BRISTOL-MYERS SQUIBB COMPANY-16130197

PATIENT
  Age: 48 Year
  Sex: Female

DRUGS (6)
  1. SINGULAIR [Concomitant]
  2. OMEPRAZOLE [Concomitant]
  3. CRESTOR [Concomitant]
  4. ORENCIA [Suspect]
     Indication: RHEUMATOID ARTHRITIS
     Dosage: NO OF INF: 4.
     Route: 042
     Dates: start: 20110810
  5. NASONEX [Concomitant]
  6. RELAFEN [Concomitant]

REACTIONS (5)
  - OCULAR HYPERAEMIA [None]
  - EYE SWELLING [None]
  - DERMATITIS [None]
  - EYELIDS PRURITUS [None]
  - ERYTHEMA OF EYELID [None]
